FAERS Safety Report 8231853-7 (Version None)
Quarter: 2012Q1

REPORT INFORMATION
  Report Type: 
  Country: None (occurrence: None)
  Receive Date: 20120323
  Receipt Date: 20120315
  Transmission Date: 20120608
  Serious: Yes (Other)
  Sender: FDA-Public Use
  Company Number: US-JNJFOC-20120308792

PATIENT
  Sex: Female
  Weight: 130.18 kg

DRUGS (16)
  1. FENTANYL CITRATE [Suspect]
     Indication: FIBROMYALGIA
     Route: 062
     Dates: start: 20110101, end: 20120201
  2. TRAZODONE HCL [Concomitant]
     Indication: SLEEP DISORDER
     Route: 048
     Dates: start: 20120101
  3. RANITIDINE [Concomitant]
     Indication: HYPERCHLORHYDRIA
     Dosage: ONCE OR TWICE DAILY
     Route: 048
     Dates: start: 20110101
  4. FENTANYL CITRATE [Suspect]
     Indication: OSTEOARTHRITIS
     Route: 062
     Dates: start: 20110101, end: 20120201
  5. MARINOL [Concomitant]
     Indication: PAIN
     Route: 048
     Dates: start: 20120101
  6. TRAZODONE HCL [Concomitant]
     Indication: MUSCLE DISORDER
     Route: 048
     Dates: start: 20120101
  7. TRILEPTAL [Concomitant]
     Indication: CONVULSION
     Route: 048
     Dates: start: 20120101
  8. DURAGESIC-100 [Suspect]
     Indication: OSTEOARTHRITIS
     Route: 062
     Dates: start: 20120301
  9. LAMICTAL [Concomitant]
     Indication: CONVULSION
     Route: 048
     Dates: start: 20120101
  10. DURAGESIC-100 [Suspect]
     Indication: LYME DISEASE
     Route: 062
     Dates: start: 20120301
  11. TRILEPTAL [Concomitant]
     Indication: PAIN
     Route: 048
     Dates: start: 20120101
  12. FENTANYL CITRATE [Suspect]
     Indication: LYME DISEASE
     Route: 062
     Dates: start: 20110101, end: 20120201
  13. PROMETHAZINE [Concomitant]
     Indication: NAUSEA
     Dosage: UPTO 3 TIMES DAILY AS NECESSARY
     Route: 048
     Dates: start: 20110101
  14. KLONOPIN [Concomitant]
     Indication: SLEEP DISORDER
     Route: 048
     Dates: start: 20120101
  15. DURAGESIC-100 [Suspect]
     Indication: FIBROMYALGIA
     Route: 062
     Dates: start: 20120301
  16. LAMICTAL [Concomitant]
     Indication: PAIN
     Route: 048
     Dates: start: 20120101

REACTIONS (16)
  - WEIGHT INCREASED [None]
  - OSTEOARTHRITIS [None]
  - PROTEIN TOTAL DECREASED [None]
  - WRONG TECHNIQUE IN DRUG USAGE PROCESS [None]
  - FALL [None]
  - HEPATIC ENZYME INCREASED [None]
  - DERMATITIS CONTACT [None]
  - BODY HEIGHT DECREASED [None]
  - ASTHENIA [None]
  - HYPOVITAMINOSIS [None]
  - NAUSEA [None]
  - DIZZINESS [None]
  - DYSPNOEA [None]
  - FLUID INTAKE REDUCED [None]
  - VOMITING [None]
  - PRODUCT QUALITY ISSUE [None]
